FAERS Safety Report 8563480-6 (Version None)
Quarter: 2012Q3

REPORT INFORMATION
  Report Type: 
  Country: None (occurrence: None)
  Receive Date: 20120802
  Receipt Date: 20120725
  Transmission Date: 20120928
  Serious: Yes (Hospitalization)
  Sender: FDA-Public Use
  Company Number: US-SANOFI-AVENTIS-2012SA053620

PATIENT
  Age: 70 Year
  Sex: Male
  Weight: 85.3 kg

DRUGS (4)
  1. ASPIRIN [Suspect]
     Route: 048
     Dates: start: 20050101
  2. PLAVIX [Suspect]
     Route: 048
     Dates: start: 20080101
  3. SIMVASTATIN [Suspect]
     Indication: TYPE 2 DIABETES MELLITUS
     Route: 048
  4. IBUPROFEN [Suspect]
     Route: 048

REACTIONS (3)
  - UPPER GASTROINTESTINAL HAEMORRHAGE [None]
  - PACEMAKER GENERATED ARRHYTHMIA [None]
  - PEPTIC ULCER [None]
